FAERS Safety Report 9486850 (Version 5)
Quarter: 2014Q2

REPORT INFORMATION
  Report Type: Spontaneous
  Country: CO (occurrence: CO)
  Receive Date: 20130829
  Receipt Date: 20140421
  Transmission Date: 20141212
  Serious: Yes (Death, Hospitalization, Other)
  Sender: FDA-Public Use
  Company Number: CO-MPIJNJ-2013JNJ000103

PATIENT
  Sex: 0

DRUGS (1)
  1. VELCADE [Suspect]
     Indication: PLASMA CELL MYELOMA
     Dosage: 2.3 MG, CYCLIC
     Route: 065
     Dates: start: 20130813, end: 20140320

REACTIONS (13)
  - Renal failure chronic [Fatal]
  - Respiratory distress [Unknown]
  - Hypertensive crisis [Recovered/Resolved]
  - Chest pain [Not Recovered/Not Resolved]
  - Convulsion [Unknown]
  - Feeling abnormal [Recovered/Resolved]
  - Dyspnoea [Unknown]
  - Haemoglobin decreased [Recovering/Resolving]
  - Pain [Unknown]
  - Fatigue [Unknown]
  - Asthenia [Unknown]
  - Hot flush [Unknown]
  - Cough [Unknown]
